FAERS Safety Report 4313798-8 (Version None)
Quarter: 2004Q1

REPORT INFORMATION
  Report Type: 
  Country: None (occurrence: None)
  Receive Date: 20040305
  Receipt Date: 20040301
  Transmission Date: 20041129
  Serious: Yes (Hospitalization)
  Sender: FDA-Public Use
  Company Number: 2004200267FR

PATIENT
  Age: 1 Day
  Sex: Female
  Weight: 1.7 kg

DRUGS (17)
  1. CYTARABINE [Suspect]
     Dates: start: 20031211
  2. CYTARABINE [Suspect]
     Dates: start: 20031219
  3. CYTARABINE [Suspect]
     Dates: start: 20031223
  4. ADRIBLASTINE (DOXORUBICIN HYDROCHLORIDE) POWDER, STERILE [Suspect]
     Dates: start: 20031211
  5. SOLU-MEDROL [Suspect]
     Dosage: 60 MG
     Dates: start: 20031223, end: 20031224
  6. DEPO-MEDROL [Suspect]
     Dates: start: 20031211
  7. DEPO-MEDROL [Suspect]
     Dates: start: 20031219
  8. DEPO-MEDROL [Suspect]
     Dates: start: 20031223
  9. CYCLOPHOSPHAMIDE [Suspect]
     Dates: start: 20031211
  10. OMEPRAZOLE [Suspect]
     Dosage: 40 MG, SINGLE
     Dates: start: 20031223, end: 20031224
  11. METHOTREXATE [Suspect]
     Dates: start: 20031211
  12. METHOTREXATE [Suspect]
     Dates: start: 20031219
  13. METHOTREXATE [Suspect]
     Dates: start: 20031223
  14. NEUPOGEN [Suspect]
     Dates: start: 20031223, end: 20031224
  15. ONCOVIN [Suspect]
     Dates: start: 20031211
  16. Z [Suspect]
     Dates: start: 20031211
  17. TAZOCILLINE(TAZOBACTAM SODIUM) [Suspect]
     Dates: start: 20031223, end: 20031224

REACTIONS (5)
  - DRUG EXPOSURE DURING PREGNANCY [None]
  - GAMMA-GLUTAMYLTRANSFERASE INCREASED [None]
  - HYPERBILIRUBINAEMIA NEONATAL [None]
  - JAUNDICE NEONATAL [None]
  - NEONATAL DISORDER [None]
